FAERS Safety Report 9693936 (Version 1)
Quarter: 2013Q4

REPORT INFORMATION
  Report Type: Spontaneous
  Country: AT (occurrence: AT)
  Receive Date: 20131118
  Receipt Date: 20131118
  Transmission Date: 20140711
  Serious: Yes (Death, Hospitalization)
  Sender: FDA-Public Use
  Company Number: PHHY2013AT130425

PATIENT
  Age: 75 Year
  Sex: Female

DRUGS (12)
  1. AZATHIOPRINE [Suspect]
  2. RILUZOLE [Suspect]
  3. MIDAZOLAM [Suspect]
     Indication: ANALGESIC THERAPY
  4. AMIODARONE [Suspect]
     Indication: ATRIAL FIBRILLATION
     Dosage: 150 MG, UNK
     Route: 042
  5. CORTICOSTEROIDS [Suspect]
  6. MORPHINE [Concomitant]
     Indication: ANALGESIC THERAPY
  7. DIGITOXIN [Concomitant]
  8. CITALOPRAM [Concomitant]
  9. MIRTAZAPIN [Concomitant]
  10. PROTHIPENDYL [Concomitant]
  11. ACETYLCYSTEINE [Concomitant]
  12. PANTOPRAZOLE [Concomitant]

REACTIONS (5)
  - Death [Fatal]
  - Stress cardiomyopathy [Recovered/Resolved]
  - Torsade de pointes [Recovered/Resolved]
  - Respiratory failure [Unknown]
  - Drug ineffective [Unknown]
